FAERS Safety Report 26169862 (Version 2)
Quarter: 2025Q4

REPORT INFORMATION
  Report Type: Spontaneous
  Country: US (occurrence: US)
  Receive Date: 20251217
  Receipt Date: 20251229
  Transmission Date: 20260118
  Serious: Yes (Hospitalization, Other)
  Sender: PFIZER
  Company Number: US-PFIZER INC-202500241929

PATIENT
  Age: 30 Year
  Sex: Female

DRUGS (2)
  1. FENTANYL CITRATE [Interacting]
     Active Substance: FENTANYL CITRATE
     Dosage: UNK
  2. COCAINE [Interacting]
     Active Substance: COCAINE
     Dosage: UNK

REACTIONS (2)
  - Overdose [Unknown]
  - Drug interaction [Unknown]
